FAERS Safety Report 15451670 (Version 14)
Quarter: 2021Q4

REPORT INFORMATION
  Report Type: Spontaneous
  Country: JP (occurrence: JP)
  Receive Date: 20181001
  Receipt Date: 20211003
  Transmission Date: 20220303
  Serious: Yes (Hospitalization, Other)
  Sender: FDA-Public Use
  Company Number: JP-UNITED THERAPEUTICS-UNT-2018-014008

PATIENT
  Age: 28 Year
  Sex: Male
  Weight: 81.5 kg

DRUGS (18)
  1. REMODULIN [Suspect]
     Active Substance: TREPROSTINIL
     Indication: Pulmonary arterial hypertension
     Dosage: UNK, CONTINUING
     Route: 058
     Dates: start: 20180822, end: 201808
  2. REMODULIN [Suspect]
     Active Substance: TREPROSTINIL
     Dosage: 0.0021 ?G/KG, CONTINUING
     Route: 058
     Dates: start: 201808, end: 2018
  3. REMODULIN [Suspect]
     Active Substance: TREPROSTINIL
     Dosage: 23 MCL/HR, CONTINUING
     Route: 058
     Dates: start: 2018, end: 2018
  4. REMODULIN [Suspect]
     Active Substance: TREPROSTINIL
     Dosage: 0.0156 ?G/KG, CONTINUING
     Route: 058
     Dates: start: 2018, end: 2018
  5. REMODULIN [Suspect]
     Active Substance: TREPROSTINIL
     Dosage: 0.0188 ?G/KG, CONTINUING
     Route: 058
     Dates: start: 2018
  6. REMODULIN [Suspect]
     Active Substance: TREPROSTINIL
     Dosage: 0.030 ?G/KG, CONTINUING (APPROXIMATELY)
     Route: 058
     Dates: start: 2019, end: 2019
  7. REMODULIN [Suspect]
     Active Substance: TREPROSTINIL
     Dosage: 0.040 ?G/KG, CONTINUING
     Route: 058
     Dates: start: 2019, end: 2019
  8. REMODULIN [Suspect]
     Active Substance: TREPROSTINIL
     Dosage: 0.0988 ?G/KG, CONTINUING
     Route: 058
     Dates: start: 2019
  9. REMODULIN [Suspect]
     Active Substance: TREPROSTINIL
     Dosage: LITTLE LESS THAN 0.1 ?G/KG, CONTINUING
     Route: 058
     Dates: start: 2019
  10. REMODULIN [Suspect]
     Active Substance: TREPROSTINIL
     Dosage: 0.072 ?G/KG, CONTINUING
     Route: 058
     Dates: end: 2019
  11. RIOCIGUAT [Suspect]
     Active Substance: RIOCIGUAT
     Indication: Pulmonary arterial hypertension
     Dosage: UNK
     Route: 048
     Dates: start: 201507, end: 20200417
  12. AMBRISENTAN [Concomitant]
     Active Substance: AMBRISENTAN
     Indication: Pulmonary arterial hypertension
     Dosage: UNK
     Route: 048
     Dates: start: 201507
  13. FUROSEMIDE [Concomitant]
     Active Substance: FUROSEMIDE
     Indication: Pulmonary arterial hypertension
     Dosage: UNK
     Route: 048
  14. WARFARIN POTASSIUM [Concomitant]
     Active Substance: WARFARIN POTASSIUM
     Indication: Pulmonary arterial hypertension
     Dosage: UNK
     Route: 048
     Dates: end: 20180921
  15. BERAPROST SODIUM [Concomitant]
     Active Substance: BERAPROST SODIUM
     Indication: Pulmonary arterial hypertension
     Dosage: UNK
     Route: 065
     Dates: start: 201508, end: 20180906
  16. ILOPROST [Concomitant]
     Active Substance: ILOPROST
     Indication: Pulmonary arterial hypertension
     Dosage: UNK
     Route: 065
     Dates: start: 201609, end: 20180906
  17. TADALAFIL [Concomitant]
     Active Substance: TADALAFIL
     Indication: Pulmonary arterial hypertension
     Dosage: UNK
     Route: 048
     Dates: start: 20200418
  18. EPLERENONE [Concomitant]
     Active Substance: EPLERENONE
     Indication: Pulmonary arterial hypertension
     Dosage: UNK
     Route: 048

REACTIONS (8)
  - Pericardial effusion [Recovered/Resolved]
  - Cholecystitis [Recovered/Resolved]
  - Injection site discolouration [Unknown]
  - Injection site erythema [Unknown]
  - Injection site induration [Unknown]
  - Injection site pain [Not Recovered/Not Resolved]
  - Injection site pruritus [Unknown]
  - Injection site haemorrhage [Unknown]

NARRATIVE: CASE EVENT DATE: 20180101
